FAERS Safety Report 6813096-4 (Version None)
Quarter: 2010Q3

REPORT INFORMATION
  Report Type: 
  Country: None (occurrence: None)
  Receive Date: 20100701
  Receipt Date: 20100622
  Transmission Date: 20110219
  Serious: Yes (Life-Threatening)
  Sender: FDA-Public Use
  Company Number: JP-BAXTER-2010BH017087

PATIENT
  Age: 54 Year
  Sex: Male

DRUGS (23)
  1. ENDOXAN BAXTER [Suspect]
     Indication: IDIOPATHIC PULMONARY FIBROSIS
     Route: 065
     Dates: start: 20091019, end: 20100103
  2. ENDOXAN BAXTER [Suspect]
     Indication: OFF LABEL USE
     Route: 065
     Dates: start: 20091019, end: 20100103
  3. PREDNISONE TAB [Suspect]
     Indication: IDIOPATHIC PULMONARY FIBROSIS
     Route: 048
     Dates: start: 20090101, end: 20090630
  4. PREDNISONE TAB [Suspect]
     Route: 048
     Dates: start: 20090701, end: 20091012
  5. PREDNISONE TAB [Suspect]
     Route: 048
     Dates: start: 20091013, end: 20091111
  6. PREDNISONE TAB [Suspect]
     Route: 048
     Dates: start: 20091112, end: 20091125
  7. PREDNISONE TAB [Suspect]
     Route: 048
     Dates: start: 20091126, end: 20091209
  8. PREDNISONE TAB [Suspect]
     Route: 048
     Dates: start: 20091210, end: 20100103
  9. PIRESPA [Concomitant]
     Indication: IDIOPATHIC PULMONARY FIBROSIS
     Route: 048
     Dates: start: 20090519, end: 20090601
  10. PIRESPA [Concomitant]
     Route: 048
     Dates: start: 20090602, end: 20090615
  11. PIRESPA [Concomitant]
     Route: 048
     Dates: start: 20090616, end: 20100103
  12. NEORAL [Concomitant]
     Indication: IDIOPATHIC PULMONARY FIBROSIS
     Route: 048
     Dates: end: 20091018
  13. GASTER D [Concomitant]
     Indication: PROPHYLAXIS
     Route: 048
     Dates: end: 20100103
  14. COTRIM [Concomitant]
     Indication: PROPHYLAXIS
     Route: 048
     Dates: end: 20100103
  15. ACTONEL [Concomitant]
     Indication: PRODUCT USED FOR UNKNOWN INDICATION
     Route: 048
     Dates: end: 20100103
  16. RHYTHMY [Concomitant]
     Indication: PRODUCT USED FOR UNKNOWN INDICATION
     Route: 048
     Dates: end: 20100103
  17. NOVOLIN R [Concomitant]
     Indication: PRODUCT USED FOR UNKNOWN INDICATION
     Route: 065
     Dates: start: 20091006, end: 20100206
  18. ACTOS [Concomitant]
     Indication: PRODUCT USED FOR UNKNOWN INDICATION
     Route: 048
     Dates: start: 20090529, end: 20090901
  19. ACTOS [Concomitant]
     Route: 048
     Dates: start: 20090902, end: 20091005
  20. MITIGLINIDE [Concomitant]
     Indication: PRODUCT USED FOR UNKNOWN INDICATION
     Route: 048
     Dates: start: 20090615, end: 20090901
  21. MITIGLINIDE [Concomitant]
     Route: 048
     Dates: start: 20090902, end: 20091005
  22. LASIX [Concomitant]
     Indication: PRODUCT USED FOR UNKNOWN INDICATION
     Route: 048
     Dates: start: 20090805, end: 20091021
  23. DEPAS [Concomitant]
     Indication: PRODUCT USED FOR UNKNOWN INDICATION
     Route: 048
     Dates: start: 20091002, end: 20100103

REACTIONS (3)
  - INTERSTITIAL LUNG DISEASE [None]
  - PNEUMONIA [None]
  - SYSTEMIC INFLAMMATORY RESPONSE SYNDROME [None]
